FAERS Safety Report 25108650 (Version 1)
Quarter: 2025Q1

REPORT INFORMATION
  Report Type: Spontaneous
  Country: GB (occurrence: GB)
  Receive Date: 20250322
  Receipt Date: 20250322
  Transmission Date: 20250409
  Serious: Yes (Hospitalization)
  Sender: AUROBINDO
  Company Number: GB-MHRA-MED-202503071309461330-HNLQV

PATIENT
  Age: 32 Year
  Sex: Female

DRUGS (1)
  1. NORTRIPTYLINE HYDROCHLORIDE [Suspect]
     Active Substance: NORTRIPTYLINE HYDROCHLORIDE
     Indication: Migraine
     Route: 065
     Dates: end: 20250305

REACTIONS (1)
  - Heart rate [Recovering/Resolving]

NARRATIVE: CASE EVENT DATE: 20250304
